FAERS Safety Report 21020238 (Version 4)
Quarter: 2022Q3

REPORT INFORMATION
  Report Type: Report from Study
  Country: TR (occurrence: TR)
  Receive Date: 20220628
  Receipt Date: 20220731
  Transmission Date: 20221027
  Serious: Yes (Hospitalization, Other)
  Sender: FDA-Public Use
  Company Number: TR-ABBVIE-22K-161-4448231-00

PATIENT
  Sex: Male
  Weight: 85 kg

DRUGS (6)
  1. CARBIDOPA\LEVODOPA [Suspect]
     Active Substance: CARBIDOPA\LEVODOPA
     Indication: Parkinson^s disease
     Dosage: MORNING DOSE (ML): 11.40 CONTINUOUS DOSE (ML): 4.00 EXTRA DOSE (ML): 1.50
     Route: 050
     Dates: start: 20220415, end: 20220620
  2. CARBIDOPA\LEVODOPA [Suspect]
     Active Substance: CARBIDOPA\LEVODOPA
     Dosage: MORNING DOSE (ML): 4.00 CONTINIOUS DOSE (ML): 2.50 EXTRA DOSE (ML): 1.00
     Route: 050
     Dates: start: 20220620, end: 20220715
  3. CARBIDOPA\LEVODOPA [Suspect]
     Active Substance: CARBIDOPA\LEVODOPA
     Dosage: MORNING DOSE (ML): 4.00 CONTINIOUS DOSE (ML): 2.50 EXTRA DOSE (ML): 1.00
     Route: 050
     Dates: start: 20220728
  4. SERTRALINE HYDROCHLORIDE [Concomitant]
     Active Substance: SERTRALINE HYDROCHLORIDE
     Indication: Sleep disorder
     Route: 048
     Dates: start: 2020
  5. PARKIPEX ER [Concomitant]
     Indication: Parkinson^s disease
     Route: 048
     Dates: start: 2020
  6. DOPADEX SR [Concomitant]
     Indication: Parkinson^s disease
     Dosage: 1X2
     Route: 048
     Dates: start: 2019

REACTIONS (2)
  - Myocardial infarction [Recovered/Resolved]
  - Acute kidney injury [Recovered/Resolved]

NARRATIVE: CASE EVENT DATE: 20220101
